FAERS Safety Report 14336191 (Version 2)
Quarter: 2018Q1

REPORT INFORMATION
  Report Type: Spontaneous
  Country: CA (occurrence: CA)
  Receive Date: 20171229
  Receipt Date: 20180312
  Transmission Date: 20180509
  Serious: Yes (Other)
  Sender: FDA-Public Use
  Company Number: CA-BAYER-2017-246473

PATIENT
  Age: 30 Year
  Sex: Female
  Weight: 61.5 kg

DRUGS (2)
  1. MIRENA [Suspect]
     Active Substance: LEVONORGESTREL
     Indication: CONTRACEPTION
     Dosage: 20 MCG/24HR, CONT
     Route: 015
     Dates: start: 2014, end: 2017
  2. MIRENA [Suspect]
     Active Substance: LEVONORGESTREL
     Indication: CONTRACEPTION

REACTIONS (4)
  - Ectopic pregnancy with contraceptive device [None]
  - Shock haemorrhagic [None]
  - Drug ineffective [None]
  - Haemodynamic instability [None]

NARRATIVE: CASE EVENT DATE: 2017
